FAERS Safety Report 18720969 (Version 17)
Quarter: 2024Q4

REPORT INFORMATION
  Report Type: Report from Study
  Country: MX (occurrence: MX)
  Receive Date: 20210108
  Receipt Date: 20241030
  Transmission Date: 20250114
  Serious: Yes (Other)
  Sender: TAKEDA
  Company Number: MX-TAKEDA-MX202013827

PATIENT
  Age: 2 Year
  Sex: Male
  Weight: 13 kg

DRUGS (9)
  1. IDURSULFASE [Suspect]
     Active Substance: IDURSULFASE
     Indication: Mucopolysaccharidosis II
     Dosage: 1 DOSAGE FORM, 1/WEEK
     Route: 042
     Dates: start: 20200311
  2. IDURSULFASE [Suspect]
     Active Substance: IDURSULFASE
     Dosage: 10.5 MILLIGRAM, 1/WEEK
     Route: 042
     Dates: start: 202003
  3. IDURSULFASE [Suspect]
     Active Substance: IDURSULFASE
     Dosage: 1 DOSAGE FORM, 1/WEEK
     Route: 042
     Dates: start: 20200408
  4. IDURSULFASE [Suspect]
     Active Substance: IDURSULFASE
     Dosage: 1 DOSAGE FORM, 1/WEEK
     Route: 042
  5. IDURSULFASE [Suspect]
     Active Substance: IDURSULFASE
     Dosage: 2 DOSAGE FORM, 1/WEEK
     Route: 042
  6. IDURSULFASE [Suspect]
     Active Substance: IDURSULFASE
     Dosage: 10.5 MILLIGRAM, 1/WEEK
     Route: 042
  7. LORATADINE [Concomitant]
     Active Substance: LORATADINE
     Indication: Product used for unknown indication
     Dosage: 3 MILLILITER, 1/WEEK
     Route: 048
  8. LORATADINE [Concomitant]
     Active Substance: LORATADINE
     Dosage: 5 MILLILITER, 1/WEEK
     Route: 048
  9. RISPERIDONE [Concomitant]
     Active Substance: RISPERIDONE
     Dosage: UNK
     Route: 048

REACTIONS (19)
  - Seizure [Recovered/Resolved]
  - Lip swelling [Recovered/Resolved]
  - Lip discolouration [Recovered/Resolved]
  - Product availability issue [Unknown]
  - Catheter site discharge [Recovered/Resolved]
  - Catheter site swelling [Recovered/Resolved]
  - Catheter site erythema [Recovered/Resolved]
  - Irritability [Recovered/Resolved]
  - Crying [Recovered/Resolved]
  - Mouth swelling [Recovered/Resolved]
  - Eye swelling [Recovered/Resolved]
  - Influenza [Unknown]
  - Poor venous access [Not Recovered/Not Resolved]
  - Weight increased [Unknown]
  - Product dose omission issue [Not Recovered/Not Resolved]
  - Inappropriate schedule of product administration [Not Recovered/Not Resolved]
  - Product prescribing error [Not Recovered/Not Resolved]
  - Treatment noncompliance [Not Recovered/Not Resolved]
  - Pyrexia [Recovered/Resolved]

NARRATIVE: CASE EVENT DATE: 20200422
